FAERS Safety Report 5327219-X (Version None)
Quarter: 2007Q2

REPORT INFORMATION
  Report Type: 
  Country: None (occurrence: None)
  Receive Date: 20070511
  Receipt Date: 20070502
  Transmission Date: 20071010
  Serious: Yes (Other)
  Sender: FDA-Public Use
  Company Number: POMP-11043

PATIENT
  Age: 1 Year
  Sex: Female
  Weight: 9.5 kg

DRUGS (2)
  1. MYOZYME [Suspect]
     Indication: GLYCOGEN STORAGE DISEASE TYPE II
     Dosage: 20 MG;KG Q2WKS IV
     Route: 042
     Dates: start: 20060101, end: 20070430
  2. ALPHA-GLUCOSIDASE (HUMAN, RECOMBINANT, CHO CELLS, GENZYME)  MFR: GENZY [Suspect]
     Indication: GLYCOGEN STORAGE DISEASE TYPE II
     Dosage: 20 MG;KG Q2WKS IV
     Route: 042
     Dates: start: 20051111, end: 20060101

REACTIONS (5)
  - ANTIBODY TEST POSITIVE [None]
  - DISEASE PROGRESSION [None]
  - ENZYME INHIBITION [None]
  - MUSCLE DISORDER [None]
  - PYREXIA [None]
